FAERS Safety Report 9971465 (Version 1)
Quarter: 2014Q1

REPORT INFORMATION
  Report Type: Report from Study
  Country: US (occurrence: US)
  Receive Date: 20140306
  Receipt Date: 20140306
  Transmission Date: 20141002
  Serious: No
  Sender: FDA-Public Use
  Company Number: US-ABBVIE-13P-163-1147948-00

PATIENT
  Sex: Female
  Weight: 55.39 kg

DRUGS (20)
  1. HUMIRA [Suspect]
     Indication: PSORIATIC ARTHROPATHY
     Route: 058
     Dates: start: 20100713, end: 20101228
  2. PRENATAL VITAMIN NOS [Concomitant]
     Indication: PRODUCT USED FOR UNKNOWN INDICATION
     Route: 048
     Dates: start: 20100428, end: 20101228
  3. CAFFEINE [Concomitant]
     Indication: PRODUCT USED FOR UNKNOWN INDICATION
     Dosage: 1 SERVING 3.5 PER WEEK
     Route: 048
     Dates: start: 20100601, end: 20101228
  4. CAFFEINE [Concomitant]
     Dosage: 1 SERVING 2 WEEK
     Route: 048
     Dates: start: 20100319, end: 20100601
  5. BEER [Concomitant]
     Indication: PRODUCT USED FOR UNKNOWN INDICATION
     Dosage: 1 SERVIN 2 WEEK
     Route: 048
     Dates: start: 20100401, end: 20100415
  6. BEER [Concomitant]
     Dosage: 10 SERVIN 1 DAY
     Route: 048
     Dates: start: 20100417, end: 20100417
  7. LIQUOR MIXED DRINK [Concomitant]
     Indication: PRODUCT USED FOR UNKNOWN INDICATION
     Dosage: 1.5 SERVING 1 DAY
     Route: 048
     Dates: start: 20100417, end: 20100417
  8. CIPRODEX OTIC SUSP [Concomitant]
     Indication: INFECTION PROPHYLAXIS
     Dosage: ROUTE EAR
     Route: 061
     Dates: start: 20100603, end: 20100609
  9. CLODERM [Concomitant]
     Indication: PSORIASIS
     Dosage: FACE AND SCALP
     Route: 061
     Dates: start: 20100609, end: 20100715
  10. METROGEL [Concomitant]
     Indication: ACNE
     Dosage: FACE, SCALP 1 DAYS
     Route: 061
     Dates: start: 20100609, end: 20100701
  11. METROGEL [Concomitant]
     Indication: PSORIASIS
  12. FINACEA GEL [Concomitant]
     Indication: ACNE
     Dosage: FACE, SCALP 1 DAY
     Route: 061
     Dates: start: 20100609, end: 20100701
  13. FINACEA GEL [Concomitant]
     Indication: PSORIASIS
  14. TYLENOL [Concomitant]
     Indication: PSORIATIC ARTHROPATHY
     Route: 048
     Dates: start: 20100605, end: 20100606
  15. TYLENOL [Concomitant]
     Dates: start: 20101031, end: 20101031
  16. EMETROL [Concomitant]
     Indication: NAUSEA
     Route: 048
     Dates: start: 20100530, end: 20100531
  17. VALTREX [Concomitant]
     Indication: HERPES VIRUS INFECTION
     Route: 048
     Dates: start: 20101031, end: 20101228
  18. FLUVIRIN VACCINE WITH THIMEROSAL [Concomitant]
     Indication: PRODUCT USED FOR UNKNOWN INDICATION
     Dosage: ONCE
     Route: 050
     Dates: start: 20100927, end: 20101001
  19. TUMS [Concomitant]
     Indication: DYSPEPSIA
     Route: 048
     Dates: start: 20101025, end: 20101228
  20. EAR DROPS NOS [Concomitant]
     Indication: STAPHYLOCOCCAL INFECTION
     Dosage: EAR
     Route: 061
     Dates: start: 20101102, end: 20101228

REACTIONS (1)
  - Abscess [Unknown]
